FAERS Safety Report 10227981 (Version 4)
Quarter: 2015Q1

REPORT INFORMATION
  Report Type: Report from Study
  Country: US (occurrence: US)
  Receive Date: 20140610
  Receipt Date: 20150302
  Transmission Date: 20150720
  Serious: Yes (Hospitalization, Other)
  Sender: FDA-Public Use
  Company Number: PHEH2014US011592

PATIENT
  Sex: Female

DRUGS (5)
  1. TOBI [Suspect]
     Active Substance: TOBRAMYCIN
     Indication: BRONCHIECTASIS
  2. ZITHROMAX [Suspect]
     Active Substance: AZITHROMYCIN DIHYDRATE
     Indication: PRODUCT USED FOR UNKNOWN INDICATION
     Route: 065
  3. TOBI [Suspect]
     Active Substance: TOBRAMYCIN
     Indication: PULMONARY VASCULAR DISORDER
     Dosage: 28 MG, UNK
     Route: 055
  4. TOBI PODHALER [Suspect]
     Active Substance: TOBRAMYCIN
     Indication: PSEUDOMONAS INFECTION
     Dosage: 4 DF, UNK
     Route: 055
     Dates: start: 20120817
  5. TOBI PODHALER [Suspect]
     Active Substance: TOBRAMYCIN
     Dosage: 112 MG, BID (28 MG, CONTENTS OF 4 CAPSULES BY MOUTH TWICE DAILY FOR 28 DAYS ON, THEN 28 DAYS OFF)
     Route: 055
     Dates: start: 201309

REACTIONS (7)
  - Fall [Unknown]
  - Concomitant disease aggravated [Recovering/Resolving]
  - Deafness [Recovering/Resolving]
  - Visual impairment [Recovering/Resolving]
  - Dizziness [Unknown]
  - Product use issue [Unknown]
  - Ear pain [Unknown]
